FAERS Safety Report 19750532 (Version 2)
Quarter: 2021Q3

REPORT INFORMATION
  Report Type: Report from Study
  Country: FR (occurrence: FR)
  Receive Date: 20210826
  Receipt Date: 20210916
  Transmission Date: 20211014
  Serious: Yes (Hospitalization)
  Sender: FDA-Public Use
  Company Number: FR-ROCHE-2895906

PATIENT
  Age: 68 Year
  Sex: Male
  Weight: 103 kg

DRUGS (10)
  1. IRBESARTAN/HYDROCHLOROTHIAZIDE [Concomitant]
     Active Substance: HYDROCHLOROTHIAZIDE\IRBESARTAN
     Indication: HYPERTENSION
     Route: 048
  2. PREGABALIN. [Concomitant]
     Active Substance: PREGABALIN
     Indication: AXILLARY PAIN
     Dates: start: 20210708
  3. OXYCODONE [Concomitant]
     Active Substance: OXYCODONE
     Route: 048
     Dates: start: 20210708
  4. ZOPICLONE [Concomitant]
     Active Substance: ZOPICLONE
     Indication: INSOMNIA
     Route: 048
  5. OXYCODONE [Concomitant]
     Active Substance: OXYCODONE
     Indication: AXILLARY PAIN
     Route: 048
     Dates: start: 20210708
  6. LIDOCAINE. [Concomitant]
     Active Substance: LIDOCAINE
     Dates: start: 20210708
  7. PERMIXON [Concomitant]
     Active Substance: HERBALS\SAW PALMETTO
     Indication: BENIGN PROSTATIC HYPERPLASIA
     Route: 048
  8. PARACETAMOL [Concomitant]
     Active Substance: ACETAMINOPHEN
     Route: 048
  9. TIRAGOLUMAB. [Suspect]
     Active Substance: TIRAGOLUMAB
     Indication: NEOPLASM
     Dosage: START DATE OF MOST RECENT DOSE OF STUDY DRUG PRIOR TO AE 02/AUG/2021 (840 MG)
     Route: 042
  10. ATEZOLIZUMAB. [Suspect]
     Active Substance: ATEZOLIZUMAB
     Indication: NEOPLASM
     Dosage: START DATE OF MOST RECENT DOSE OF STUDY DRUG PRIOR TO AE 02/AUG/2021 (1680 MG)
     Route: 041

REACTIONS (2)
  - Haemorrhage [Not Recovered/Not Resolved]
  - Anaemia [Not Recovered/Not Resolved]

NARRATIVE: CASE EVENT DATE: 20210816
